FAERS Safety Report 11985192 (Version 1)
Quarter: 2016Q1

REPORT INFORMATION
  Report Type: Spontaneous
  Country: IN (occurrence: IN)
  Receive Date: 20160201
  Receipt Date: 20160201
  Transmission Date: 20160526
  Serious: Yes (Hospitalization)
  Sender: FDA-Public Use
  Company Number: IN-BAUSCH-BL-2016-001636

PATIENT
  Age: 55 Year
  Sex: Male

DRUGS (4)
  1. ATROPINE. [Suspect]
     Active Substance: ATROPINE
     Indication: PRODUCT USED FOR UNKNOWN INDICATION
     Route: 065
  2. ATROPINE. [Suspect]
     Active Substance: ATROPINE
     Route: 065
  3. ATROPINE. [Suspect]
     Active Substance: ATROPINE
     Route: 065
  4. PRALIDOXIME [Concomitant]
     Indication: PRODUCT USED FOR UNKNOWN INDICATION
     Route: 042

REACTIONS (2)
  - Toxicity to various agents [Recovered/Resolved]
  - Substance-induced psychotic disorder [Recovered/Resolved]
